FAERS Safety Report 18002121 (Version 1)
Quarter: 2020Q3

REPORT INFORMATION
  Report Type: Spontaneous
  Country: CA (occurrence: CA)
  Receive Date: 20200709
  Receipt Date: 20200709
  Transmission Date: 20201103
  Serious: Yes (Hospitalization)
  Sender: FDA-Public Use
  Company Number: CA-TEVA-2020-CA-1798015

PATIENT
  Age: 15 Year
  Sex: Male

DRUGS (2)
  1. VINCRISTINE SULFATE. [Suspect]
     Active Substance: VINCRISTINE SULFATE
     Route: 065
  2. ASPARAGINASE(ERWINIA) [Concomitant]

REACTIONS (2)
  - Neutropenia [Unknown]
  - Pyrexia [Unknown]
